FAERS Safety Report 14946152 (Version 1)
Quarter: 2018Q2

REPORT INFORMATION
  Report Type: Spontaneous
  Country: JP (occurrence: JP)
  Receive Date: 20180529
  Receipt Date: 20180529
  Transmission Date: 20180711
  Serious: Yes (Death, Other)
  Sender: FDA-Public Use
  Company Number: JP-JNJFOC-20180514795

PATIENT
  Age: 80 Year
  Sex: Male

DRUGS (9)
  1. REBAMIPIDE [Concomitant]
     Active Substance: REBAMIPIDE
     Indication: GASTRIC ULCER HAEMORRHAGE
     Dosage: AFTER EACH MEAL
     Route: 048
     Dates: start: 20170401, end: 20180425
  2. GASTER [Concomitant]
     Active Substance: FAMOTIDINE
     Indication: GASTRIC ULCER HAEMORRHAGE
     Dosage: IN THE AFTERNOON
     Route: 048
     Dates: start: 20170411, end: 20180425
  3. CARBOCISTEINE [Concomitant]
     Active Substance: CARBOCYSTEINE
     Dosage: AFTER EACH MEAL
     Route: 048
  4. PREDONINE [Concomitant]
     Active Substance: PREDNISOLONE
     Indication: PROSTATE CANCER
     Dosage: IN THE MORNING AND AFTERNOON
     Route: 048
     Dates: start: 20170411, end: 20180425
  5. LEUPLIN [Concomitant]
     Active Substance: LEUPROLIDE ACETATE
     Indication: PROSTATE CANCER
     Route: 065
     Dates: start: 20180410
  6. FLIVAS [Concomitant]
     Active Substance: NAFTOPIDIL
     Indication: BENIGN PROSTATIC HYPERPLASIA
     Dosage: NAFTOPIDIL, IN THE MORNING
     Route: 048
     Dates: start: 20170411, end: 20180425
  7. OXYCONTIN [Concomitant]
     Active Substance: OXYCODONE HYDROCHLORIDE
     Indication: CANCER PAIN
     Dosage: IN THE MORNING AND AFTERNOON
     Route: 048
     Dates: start: 20170411, end: 20180417
  8. ZYTIGA [Suspect]
     Active Substance: ABIRATERONE ACETATE
     Indication: PROSTATE CANCER
     Dosage: IN THE AFTERNOON
     Route: 048
     Dates: start: 20170425, end: 20180516
  9. GONAX [Concomitant]
     Active Substance: DEGARELIX
     Indication: PROSTATE CANCER
     Route: 058
     Dates: start: 20170411, end: 20180313

REACTIONS (6)
  - Pneumonia [Unknown]
  - Pleural effusion [Unknown]
  - Death [Fatal]
  - Gastric ulcer haemorrhage [Unknown]
  - Chronic kidney disease [Unknown]
  - Faeces discoloured [Unknown]

NARRATIVE: CASE EVENT DATE: 20180401
